FAERS Safety Report 19589350 (Version 2)
Quarter: 2021Q3

REPORT INFORMATION
  Report Type: Spontaneous
  Country: US (occurrence: US)
  Receive Date: 20210721
  Receipt Date: 20210930
  Transmission Date: 20211014
  Serious: Yes (Other)
  Sender: FDA-Public Use
  Company Number: US-IMPRIMIS NJOF-2114100

PATIENT

DRUGS (1)
  1. MOXIFLOXACIN 5 MG/ML [Suspect]
     Active Substance: MOXIFLOXACIN
     Indication: CATARACT
     Route: 031
     Dates: start: 20210715, end: 20210715

REACTIONS (1)
  - Inflammation [Recovered/Resolved]

NARRATIVE: CASE EVENT DATE: 20210715
